FAERS Safety Report 5303473-5 (Version None)
Quarter: 2007Q2

REPORT INFORMATION
  Report Type: 
  Country: None (occurrence: None)
  Receive Date: 20070420
  Receipt Date: 20070312
  Transmission Date: 20071010
  Serious: Yes (Disabling)
  Sender: FDA-Public Use
  Company Number: US-SANOFI-SYNTHELABO-A03200702424

PATIENT
  Sex: Male

DRUGS (21)
  1. LIBRIUM [Concomitant]
     Indication: INSOMNIA
     Route: 065
     Dates: start: 20020101, end: 20050101
  2. REMERON [Concomitant]
     Indication: DEPRESSION
     Route: 065
     Dates: start: 20020101, end: 20050101
  3. REMERON [Concomitant]
     Indication: SLEEP DISORDER
     Route: 065
     Dates: start: 20020101, end: 20050101
  4. METHADONE HCL [Concomitant]
     Indication: PAIN
     Route: 065
     Dates: start: 20040601, end: 20050101
  5. FENTANYL [Concomitant]
     Indication: PAIN
     Route: 065
     Dates: start: 20020101, end: 20040601
  6. ZYPREXA [Concomitant]
     Indication: DEPRESSION
     Route: 065
     Dates: start: 20020101, end: 20050101
  7. TUMS [Concomitant]
     Indication: GASTROOESOPHAGEAL REFLUX DISEASE
     Dosage: 5 TO 10 PER DAY
     Route: 065
     Dates: start: 20020101, end: 20050101
  8. PROTONIX [Concomitant]
     Indication: HIATUS HERNIA
     Route: 065
     Dates: start: 20020101, end: 20050101
  9. CYTOMEL [Concomitant]
     Indication: HYPOTHYROIDISM
     Route: 065
     Dates: start: 20020101, end: 20050101
  10. LEVOXYL [Concomitant]
     Indication: HYPOTHYROIDISM
     Route: 065
     Dates: start: 20020101
  11. HYDROCHLOROTHIAZIDE [Concomitant]
     Indication: HYPERTENSION
     Route: 065
     Dates: start: 20020101
  12. TRAZODONE HCL [Concomitant]
     Indication: ANXIETY
     Route: 065
     Dates: start: 20000101, end: 20050101
  13. TRAZODONE HCL [Concomitant]
     Indication: STRESS
     Route: 065
     Dates: start: 20000101, end: 20050101
  14. PREVACID [Concomitant]
     Indication: HIATUS HERNIA
     Route: 065
     Dates: end: 20020101
  15. TYLENOL [Concomitant]
     Indication: PAIN
     Dosage: 1 TO 2 GRAMS PRN
     Route: 065
     Dates: start: 20000101, end: 20020101
  16. TYLENOL [Concomitant]
     Route: 065
     Dates: start: 20050101
  17. VICODIN [Concomitant]
     Indication: PAIN
     Route: 065
     Dates: start: 20000101, end: 20020101
  18. TENORMIN [Concomitant]
     Indication: HYPERTENSION
     Route: 065
  19. AMBIEN [Suspect]
     Indication: INSOMNIA
     Route: 048
     Dates: start: 20000701, end: 20030101
  20. AMBIEN [Suspect]
     Dosage: 10 TO 15 MG PER NIGHT
     Route: 048
     Dates: start: 20030201, end: 20050214
  21. ACTIQ [Concomitant]
     Indication: PAIN
     Route: 065
     Dates: start: 20040601, end: 20050101

REACTIONS (15)
  - ABNORMAL BEHAVIOUR [None]
  - AMNESIA [None]
  - APHONIA [None]
  - CHRONIC FATIGUE SYNDROME [None]
  - CONDITION AGGRAVATED [None]
  - COUGH [None]
  - DISSOCIATIVE FUGUE [None]
  - DRUG INEFFECTIVE [None]
  - EATING DISORDER [None]
  - FEELING ABNORMAL [None]
  - GASTROOESOPHAGEAL REFLUX DISEASE [None]
  - HIATUS HERNIA [None]
  - PAIN [None]
  - SLEEP TALKING [None]
  - SLEEP WALKING [None]
